FAERS Safety Report 23666509 (Version 1)
Quarter: 2024Q1

REPORT INFORMATION
  Report Type: Spontaneous
  Country: US (occurrence: US)
  Receive Date: 20240324
  Receipt Date: 20240324
  Transmission Date: 20240409
  Serious: No
  Sender: FDA-Public Use
  Company Number: US-SA-SAC20240321001116

PATIENT
  Sex: Male
  Weight: 83.46 kg

DRUGS (12)
  1. DUPIXENT [Suspect]
     Active Substance: DUPILUMAB
     Indication: Dermatitis atopic
     Dosage: 300 MG, QOW
     Route: 058
     Dates: start: 20230501
  2. DOXYCYCLINE HYCLATE [Concomitant]
     Active Substance: DOXYCYCLINE HYCLATE
  3. COLCHICINE [Concomitant]
     Active Substance: COLCHICINE
  4. ATORVASTATIN CALCIUM [Concomitant]
     Active Substance: ATORVASTATIN CALCIUM
  5. OMEPRAZOLE [Concomitant]
     Active Substance: OMEPRAZOLE
  6. NAPROXEN [Concomitant]
     Active Substance: NAPROXEN
  7. CIALIS [Concomitant]
     Active Substance: TADALAFIL
  8. FLUOCINONIDE [Concomitant]
     Active Substance: FLUOCINONIDE
  9. CLOBETASOL [Concomitant]
     Active Substance: CLOBETASOL
  10. HYDROCORTISONE [Concomitant]
     Active Substance: HYDROCORTISONE
  11. LISINOPRIL [Concomitant]
     Active Substance: LISINOPRIL
  12. VITAMIN D2 [Concomitant]
     Active Substance: ERGOCALCIFEROL

REACTIONS (1)
  - Surgery [Unknown]
